FAERS Safety Report 17877788 (Version 2)
Quarter: 2020Q3

REPORT INFORMATION
  Report Type: Spontaneous
  Country: US (occurrence: US)
  Receive Date: 20200609
  Receipt Date: 20200710
  Transmission Date: 20201103
  Serious: Yes (Death, Other)
  Sender: FDA-Public Use
  Company Number: US-GILEAD-2020-0470621

PATIENT
  Age: 63 Year
  Sex: Male
  Weight: 87.2 kg

DRUGS (8)
  1. FENTANYL. [Concomitant]
     Active Substance: FENTANYL
     Dosage: UNK
     Dates: start: 20200523, end: 20200526
  2. AZITHROMYCIN ANHYDROUS. [Concomitant]
     Active Substance: AZITHROMYCIN ANHYDROUS
     Indication: PNEUMONIA
     Dosage: UNK
     Dates: start: 20200520, end: 20200525
  3. ENOXAPARIN [Concomitant]
     Active Substance: ENOXAPARIN
     Indication: THROMBOSIS PROPHYLAXIS
     Dosage: UNK
     Dates: start: 20200522, end: 20200525
  4. ROCURONIUM [Concomitant]
     Active Substance: ROCURONIUM BROMIDE
     Indication: VENTRICULAR DYSFUNCTION
     Dosage: UNK
     Dates: start: 20200524, end: 20200526
  5. REMDESIVIR. [Suspect]
     Active Substance: REMDESIVIR
     Indication: COVID-19
     Dosage: 200 MG, ONCE
     Route: 042
     Dates: start: 20200525, end: 20200525
  6. FAMOTIDINE. [Concomitant]
     Active Substance: FAMOTIDINE
     Indication: RESPIRATORY TRACT INFECTION
     Dosage: UNK
     Dates: start: 20200524, end: 20200526
  7. CEFTRIAXONE. [Concomitant]
     Active Substance: CEFTRIAXONE
     Indication: PNEUMONIA
     Dosage: UNK
     Dates: start: 20200520, end: 20200525
  8. KAYEXALATE [Concomitant]
     Active Substance: SODIUM POLYSTYRENE SULFONATE
     Indication: HYPERKALAEMIA
     Dosage: UNK
     Dates: start: 20200525, end: 20200525

REACTIONS (4)
  - Septic shock [Fatal]
  - Acute respiratory failure [Fatal]
  - COVID-19 [Fatal]
  - Cardiac arrest [Fatal]

NARRATIVE: CASE EVENT DATE: 2020
